FAERS Safety Report 8326418-2 (Version None)
Quarter: 2012Q2

REPORT INFORMATION
  Report Type: 
  Country: None (occurrence: None)
  Receive Date: 20120501
  Receipt Date: 20120425
  Transmission Date: 20120825
  Serious: Yes (Hospitalization, Disabling, Other)
  Sender: FDA-Public Use
  Company Number: US-MERCK-1201USA00339

PATIENT
  Age: 59 Year
  Sex: Female
  Weight: 70 kg

DRUGS (9)
  1. FOSAMAX [Suspect]
     Route: 048
     Dates: start: 19980810, end: 20110102
  2. SELECTIVE ESTROGEN RECEPTOR MODULATOR (UNSPECIFIED) [Concomitant]
     Route: 065
     Dates: start: 19940201, end: 20040201
  3. ALENDRONATE SODIUM [Suspect]
     Route: 048
     Dates: start: 20080929
  4. FOSAMAX [Suspect]
     Route: 048
  5. VITAMINS (UNSPECIFIED) [Concomitant]
     Route: 065
  6. CHOLECALCIFEROL [Concomitant]
     Route: 065
  7. CALCIUM (UNSPECIFIED) AND CHOLECALCIFEROL [Concomitant]
     Route: 065
  8. FOSAMAX [Suspect]
     Indication: OSTEOPOROSIS
     Route: 048
     Dates: start: 19980810, end: 20110102
  9. FOSAMAX [Suspect]
     Route: 048
     Dates: start: 20101129

REACTIONS (38)
  - BLADDER CANCER RECURRENT [None]
  - PYREXIA [None]
  - FALL [None]
  - OPEN ANGLE GLAUCOMA [None]
  - OVERDOSE [None]
  - LOW TURNOVER OSTEOPATHY [None]
  - EMPHYSEMA [None]
  - COLONIC POLYP [None]
  - HAEMORRHOIDS [None]
  - INAPPROPRIATE SCHEDULE OF DRUG ADMINISTRATION [None]
  - DRUG INEFFECTIVE [None]
  - APPENDIX DISORDER [None]
  - DIVERTICULUM [None]
  - HYPERTENSION [None]
  - TONSILLAR DISORDER [None]
  - SPINAL OSTEOARTHRITIS [None]
  - FOOT FRACTURE [None]
  - FIBROSIS [None]
  - ASTHMA [None]
  - CHRONIC OBSTRUCTIVE PULMONARY DISEASE [None]
  - DENTAL CARIES [None]
  - HYPERCHOLESTEROLAEMIA [None]
  - TOOTH DISORDER [None]
  - EXCORIATION [None]
  - SINUS DISORDER [None]
  - CHEST PAIN [None]
  - DRY MOUTH [None]
  - DIABETES MELLITUS [None]
  - ANAEMIA [None]
  - FEMUR FRACTURE [None]
  - FIBROMA [None]
  - JOINT SWELLING [None]
  - OSTEOARTHRITIS [None]
  - BONE MARROW DISORDER [None]
  - HYPOTHERMIA [None]
  - ADRENAL ADENOMA [None]
  - HAEMATOMA [None]
  - BLOOD IRON INCREASED [None]
